FAERS Safety Report 22092751 (Version 1)
Quarter: 2023Q1

REPORT INFORMATION
  Report Type: Spontaneous
  Country: US (occurrence: None)
  Receive Date: 20230313
  Receipt Date: 20230313
  Transmission Date: 20230418
  Serious: Yes (Death, Life-Threatening, Hospitalization)
  Sender: FDA-Public Use
  Company Number: None

PATIENT
  Age: 72 Year
  Sex: Female
  Weight: 75.1 kg

DRUGS (1)
  1. HEPARIN [Suspect]
     Active Substance: HEPARIN SODIUM
     Indication: Anticoagulant therapy
     Dosage: OTHER FREQUENCY : MULT BOLUS + DRIP;?
     Route: 041
     Dates: start: 20230308, end: 20230308

REACTIONS (6)
  - Procedural hypertension [None]
  - Depressed level of consciousness [None]
  - Cerebral haemorrhage [None]
  - Cerebral mass effect [None]
  - Cerebral mass effect [None]
  - Brain death [None]

NARRATIVE: CASE EVENT DATE: 20230308
